FAERS Safety Report 23655061 (Version 1)
Quarter: 2024Q1

REPORT INFORMATION
  Report Type: Spontaneous
  Country: CN (occurrence: CN)
  Receive Date: 20240320
  Receipt Date: 20240320
  Transmission Date: 20240409
  Serious: Yes (Life-Threatening, Other)
  Sender: FDA-Public Use
  Company Number: CN-BAYER-2024A041427

PATIENT
  Age: 51 Year
  Sex: Male
  Weight: 52 kg

DRUGS (3)
  1. ULTRAVIST [Suspect]
     Active Substance: IOPROMIDE
     Indication: Computerised tomogram head
     Dosage: 100 ML, ONCE
     Route: 040
     Dates: start: 20240228, end: 20240228
  2. ULTRAVIST [Suspect]
     Active Substance: IOPROMIDE
     Indication: Dizziness
  3. ULTRAVIST [Suspect]
     Active Substance: IOPROMIDE
     Indication: Movement disorder

REACTIONS (5)
  - Chest discomfort [Recovered/Resolved]
  - Urinary incontinence [Recovering/Resolving]
  - Blood pressure increased [None]
  - Erythema [Recovered/Resolved]
  - Blood pressure immeasurable [Recovered/Resolved]

NARRATIVE: CASE EVENT DATE: 20240228
